FAERS Safety Report 4357870-5 (Version None)
Quarter: 2004Q2

REPORT INFORMATION
  Report Type: 
  Country: None (occurrence: None)
  Receive Date: 20040513
  Receipt Date: 20040513
  Transmission Date: 20050107
  Serious: Yes (Hospitalization, Disabling, Other)
  Sender: FDA-Public Use
  Company Number: None

PATIENT
  Sex: Female

DRUGS (2)
  1. METHYLPREDNISOLONE [Suspect]
  2. VALTREX [Suspect]

REACTIONS (9)
  - EYE INFLAMMATION [None]
  - EYE PAIN [None]
  - EYE REDNESS [None]
  - EYELID FUNCTION DISORDER [None]
  - HEADACHE [None]
  - HERPES ZOSTER [None]
  - HYPERSENSITIVITY [None]
  - LACRIMATION INCREASED [None]
  - URTICARIA [None]
